FAERS Safety Report 12829963 (Version 1)
Quarter: 2016Q4

REPORT INFORMATION
  Report Type: Spontaneous
  Country: US (occurrence: US)
  Receive Date: 20161007
  Receipt Date: 20161007
  Transmission Date: 20170207
  Serious: Yes (Other)
  Sender: FDA-Public Use
  Company Number: US-SA-2016SA135136

PATIENT
  Sex: Female

DRUGS (1)
  1. AUBAGIO [Suspect]
     Active Substance: TERIFLUNOMIDE
     Indication: MULTIPLE SCLEROSIS
     Route: 065
     Dates: start: 20140604

REACTIONS (5)
  - Liver disorder [Unknown]
  - Renal disorder [Unknown]
  - Multiple sclerosis [Unknown]
  - Alopecia [Unknown]
  - Rash macular [Unknown]
